FAERS Safety Report 19844241 (Version 1)
Quarter: 2021Q3

REPORT INFORMATION
  Report Type: Spontaneous
  Country: DE (occurrence: DE)
  Receive Date: 20210916
  Receipt Date: 20210916
  Transmission Date: 20211014
  Serious: Yes (Hospitalization)
  Sender: FDA-Public Use
  Company Number: DE-MYLANLABS-2021M1062392

PATIENT
  Age: 75 Year
  Sex: Female

DRUGS (4)
  1. METHOCLOPRAMIDE [Concomitant]
     Active Substance: METOCLOPRAMIDE HYDROCHLORIDE
     Dosage: UNK, QD
  2. DONEPEZIL. [Suspect]
     Active Substance: DONEPEZIL
     Indication: PRODUCT USED FOR UNKNOWN INDICATION
     Dosage: UNK, QD
  3. PANTOPRAZOL                        /01263201/ [Concomitant]
     Active Substance: PANTOPRAZOLE
     Dosage: UNK UNK, QD
  4. AZACITIDINE. [Suspect]
     Active Substance: AZACITIDINE
     Indication: PRODUCT USED FOR UNKNOWN INDICATION
     Dosage: ZULETZT 06/2020

REACTIONS (8)
  - Leukopenia [Unknown]
  - Anaemia [Unknown]
  - Dehydration [Unknown]
  - Thrombocytopenia [Unknown]
  - Asthenia [Unknown]
  - Circulatory collapse [Unknown]
  - Nausea [Unknown]
  - Renal impairment [Unknown]
